FAERS Safety Report 5148246-1 (Version None)
Quarter: 2006Q4

REPORT INFORMATION
  Report Type: 
  Country: None (occurrence: None)
  Receive Date: 20061106
  Receipt Date: 20061024
  Transmission Date: 20070319
  Serious: Yes (Hospitalization)
  Sender: FDA-Public Use
  Company Number: CERZ-11382

PATIENT
  Age: 29 Month
  Sex: Male
  Weight: 7 kg

DRUGS (1)
  1. CEREZYME [Suspect]
     Indication: GAUCHER'S DISEASE
     Dosage: 85 U/KG Q2WKS;IV
     Route: 042
     Dates: start: 20041102

REACTIONS (2)
  - PNEUMONIA [None]
  - PNEUMONIA ASPIRATION [None]
